FAERS Safety Report 11502288 (Version 2)
Quarter: 2016Q3

REPORT INFORMATION
  Report Type: Spontaneous
  Country: US (occurrence: US)
  Receive Date: 20150914
  Receipt Date: 20160915
  Transmission Date: 20161109
  Serious: No
  Sender: FDA-Public Use
  Company Number: US-ASTELLAS-2015US019358

PATIENT
  Age: 105 Year
  Sex: Male

DRUGS (1)
  1. XTANDI [Suspect]
     Active Substance: ENZALUTAMIDE
     Indication: PROSTATE CANCER
     Dosage: 1 DF (40 MG), ONCE DAILY
     Route: 048
     Dates: start: 20150723

REACTIONS (2)
  - Frequent bowel movements [Unknown]
  - Underdose [Unknown]

NARRATIVE: CASE EVENT DATE: 20150723
